FAERS Safety Report 5649422-1 (Version None)
Quarter: 2008Q1

REPORT INFORMATION
  Report Type: 
  Country: None (occurrence: None)
  Receive Date: 20080304
  Receipt Date: 20080220
  Transmission Date: 20080703
  Serious: Yes (Life-Threatening, Hospitalization, Other)
  Sender: FDA-Public Use
  Company Number: FR-BAYER-200710231BFR

PATIENT
  Age: 78 Year
  Sex: Female
  Weight: 73 kg

DRUGS (18)
  1. SORAFENIB [Suspect]
     Indication: NON-SMALL CELL LUNG CANCER
     Dosage: TOTAL DAILY DOSE: 800 MG  UNIT DOSE: 200 MG
     Route: 048
     Dates: start: 20070303, end: 20070311
  2. CARBOPLATIN [Suspect]
     Indication: NON-SMALL CELL LUNG CANCER
     Route: 042
     Dates: start: 20070302, end: 20070302
  3. PACLITAXEL [Suspect]
     Indication: NON-SMALL CELL LUNG CANCER
     Route: 042
     Dates: start: 20070302, end: 20070302
  4. PACLITAXEL [Suspect]
     Route: 042
     Dates: start: 20070323, end: 20070323
  5. HYTACAND [Concomitant]
     Indication: HYPERTENSION
     Route: 048
     Dates: start: 19960101
  6. TENORDATE [Concomitant]
     Indication: HYPERTENSION
     Route: 048
     Dates: start: 19960101
  7. VASTEN [Concomitant]
     Indication: HYPERCHOLESTEROLAEMIA
     Route: 048
  8. SOLUPRED [Concomitant]
     Indication: DRUG TOXICITY PROPHYLAXIS
     Route: 048
     Dates: start: 20070301, end: 20070302
  9. SOLUPRED [Concomitant]
     Route: 048
     Dates: start: 20070322, end: 20070323
  10. POLARAMINE [Concomitant]
     Indication: DRUG TOXICITY PROPHYLAXIS
     Route: 042
     Dates: start: 20070302, end: 20070302
  11. POLARAMINE [Concomitant]
     Route: 042
     Dates: start: 20070323, end: 20070323
  12. RANITIDINE [Concomitant]
     Indication: DRUG TOXICITY PROPHYLAXIS
     Route: 042
     Dates: start: 20070323, end: 20070323
  13. RANITIDINE [Concomitant]
     Route: 042
     Dates: start: 20070302, end: 20070302
  14. ZOPHREN [Concomitant]
     Indication: ANTIEMETIC SUPPORTIVE CARE
     Route: 042
     Dates: start: 20070302, end: 20070302
  15. ZOPHREN [Concomitant]
     Route: 042
     Dates: start: 20070323, end: 20070323
  16. EMEND [Concomitant]
     Indication: ANTIEMETIC SUPPORTIVE CARE
     Route: 048
     Dates: start: 20070323, end: 20070323
  17. EMEND [Concomitant]
     Route: 048
     Dates: start: 20070302, end: 20070302
  18. SOLUPRED [Concomitant]
     Indication: ANTIEMETIC SUPPORTIVE CARE
     Route: 048
     Dates: start: 20070303, end: 20070305

REACTIONS (3)
  - ANAPHYLACTIC REACTION [None]
  - CARDIO-RESPIRATORY ARREST [None]
  - RASH [None]
